FAERS Safety Report 6119272-0 (Version None)
Quarter: 2009Q1

REPORT INFORMATION
  Report Type: 
  Country: None (occurrence: None)
  Receive Date: 20090316
  Receipt Date: 20090212
  Transmission Date: 20090719
  Serious: No
  Sender: FDA-Public Use
  Company Number: US-BAYER-200814793BCC

PATIENT
  Age: 69 Year
  Sex: Female
  Weight: 76 kg

DRUGS (24)
  1. ALEVE [Suspect]
     Indication: ARTHRALGIA
     Dosage: UNIT DOSE: 220 MG
     Dates: start: 20081204
  2. ALEVE [Suspect]
     Dosage: UNIT DOSE: 220 MG
     Dates: start: 20081205
  3. COREG [Concomitant]
  4. ENALAPRIL [Concomitant]
  5. FOSAMAX [Concomitant]
  6. AMIODARONE HCL [Concomitant]
  7. SPIRONOLACTONE [Concomitant]
  8. FUROSEMIDE [Concomitant]
  9. SIMVASTATIN [Concomitant]
  10. FORADIL [Concomitant]
  11. DUONEB [Concomitant]
  12. ALBUTEROL [Concomitant]
  13. COMBIVENT [Concomitant]
  14. PULMICORT RESPULES [Concomitant]
  15. VICODIN [Concomitant]
  16. OSTEO BI-FLEX [Concomitant]
  17. CALCIUM CITRATE [Concomitant]
  18. ASPIRIN [Concomitant]
  19. FISH OIL [Concomitant]
  20. MULTI-VITAMIN [Concomitant]
  21. OCUVITE LUTEIN [Concomitant]
  22. STOOL SOFTENER [Concomitant]
  23. TYLENOL (CAPLET) [Concomitant]
  24. METAMUCIL [Concomitant]

REACTIONS (3)
  - BURNING SENSATION [None]
  - ERYTHEMA [None]
  - OEDEMA PERIPHERAL [None]
